FAERS Safety Report 4598870-X (Version None)
Quarter: 2005Q1

REPORT INFORMATION
  Report Type: 
  Country: None (occurrence: None)
  Receive Date: 20050301
  Receipt Date: 20050110
  Transmission Date: 20050727
  Serious: Yes (Other)
  Sender: FDA-Public Use
  Company Number: 2005029220

PATIENT
  Age: 88 Year
  Sex: Male
  Weight: 62.5964 kg

DRUGS (1)
  1. BEXTRA [Suspect]
     Indication: ARTHRITIS
     Dosage: ORAL
     Route: 048
     Dates: start: 20040501, end: 20040701

REACTIONS (3)
  - DRUG ERUPTION [None]
  - PRURITUS [None]
  - RASH PAPULAR [None]
